FAERS Safety Report 25388912 (Version 1)
Quarter: 2025Q2

REPORT INFORMATION
  Report Type: Spontaneous
  Country: US (occurrence: US)
  Receive Date: 20250603
  Receipt Date: 20250603
  Transmission Date: 20250716
  Serious: Yes (Hospitalization)
  Sender: VALIDUS
  Company Number: US-VALIDUS PHARMACEUTICALS LLC-VLDS-RB-2025-00001

PATIENT

DRUGS (10)
  1. BUMEX [Suspect]
     Active Substance: BUMETANIDE
     Indication: Product used for unknown indication
     Route: 065
  2. ALDACTONE [Suspect]
     Active Substance: SPIRONOLACTONE
     Indication: Product used for unknown indication
     Route: 065
  3. REMODULIN [Suspect]
     Active Substance: TREPROSTINIL
     Indication: Pulmonary arterial hypertension
     Route: 058
  4. REMODULIN [Suspect]
     Active Substance: TREPROSTINIL
     Route: 058
  5. REMODULIN [Suspect]
     Active Substance: TREPROSTINIL
     Route: 058
  6. REMODULIN [Suspect]
     Active Substance: TREPROSTINIL
     Route: 058
  7. REMODULIN [Suspect]
     Active Substance: TREPROSTINIL
     Route: 058
  8. REMODULIN [Suspect]
     Active Substance: TREPROSTINIL
     Route: 058
  9. MACITENTAN\TADALAFIL [Concomitant]
     Active Substance: MACITENTAN\TADALAFIL
     Indication: Product used for unknown indication
     Route: 065
  10. TYLENOL [Concomitant]
     Active Substance: ACETAMINOPHEN
     Indication: Product used for unknown indication
     Route: 065

REACTIONS (14)
  - Pain in extremity [Unknown]
  - Flushing [Unknown]
  - Infusion site pain [Recovering/Resolving]
  - Brain fog [Unknown]
  - Frequent bowel movements [Unknown]
  - Asthenia [Unknown]
  - Pyrexia [Unknown]
  - Epistaxis [Unknown]
  - Lip dry [Unknown]
  - Bronchitis [Unknown]
  - Headache [Unknown]
  - Dry mouth [Unknown]
  - Fatigue [Not Recovered/Not Resolved]
  - Diarrhoea [Unknown]
